FAERS Safety Report 5221746-1 (Version None)
Quarter: 2007Q1

REPORT INFORMATION
  Report Type: 
  Country: None (occurrence: None)
  Receive Date: 20070129
  Receipt Date: 20070115
  Transmission Date: 20070707
  Serious: Yes (Hospitalization)
  Sender: FDA-Public Use
  Company Number: DE-KINGPHARMUSA00001-K200700059

PATIENT

DRUGS (2)
  1. SEPTRA [Suspect]
     Indication: URINARY TRACT INFECTION
     Dosage: 160 MG/800 MG, BID
     Route: 048
  2. OPIPRAMOL [Concomitant]

REACTIONS (9)
  - ABNORMAL BEHAVIOUR [None]
  - AGITATION [None]
  - DELUSIONAL PERCEPTION [None]
  - DISTURBANCE IN ATTENTION [None]
  - HALLUCINATIONS, MIXED [None]
  - INAPPROPRIATE AFFECT [None]
  - MOOD ALTERED [None]
  - PSYCHOTIC DISORDER [None]
  - THINKING ABNORMAL [None]
